FAERS Safety Report 6238600-9 (Version None)
Quarter: 2009Q2

REPORT INFORMATION
  Report Type: 
  Country: None (occurrence: None)
  Receive Date: 20090618
  Receipt Date: 20090603
  Transmission Date: 20091009
  Serious: Yes (Death)
  Sender: FDA-Public Use
  Company Number: 2009EU002234

PATIENT
  Age: 45 Year
  Sex: Female

DRUGS (3)
  1. PROGRAF [Suspect]
     Indication: HEART TRANSPLANT
     Dosage: D
  2. MYCOPHENOLATE MOFETIL [Suspect]
     Indication: HEART TRANSPLANT
     Dosage: D
  3. CORTICOSTEROIDS [Suspect]
     Indication: HEART TRANSPLANT
     Dosage: D

REACTIONS (3)
  - INFECTION IN AN IMMUNOCOMPROMISED HOST [None]
  - SEPSIS [None]
  - TOXOPLASMOSIS [None]
